FAERS Safety Report 22143231 (Version 1)
Quarter: 2023Q1

REPORT INFORMATION
  Report Type: Other
  Country: CN (occurrence: CN)
  Receive Date: 20230327
  Receipt Date: 20230327
  Transmission Date: 20230418
  Serious: Yes (Other)
  Sender: FDA-Public Use
  Company Number: CN-PARATEK PHARMACEUTICALS, INC.-2023PTK00118

PATIENT
  Age: 45 Year
  Sex: Male
  Weight: 70 kg

DRUGS (11)
  1. NUZYRA [Suspect]
     Active Substance: OMADACYCLINE
     Indication: Staphylococcal infection
     Dosage: 0.1 G, 1X/DAY
     Route: 041
     Dates: start: 20230308, end: 20230310
  2. CYCLOSPORINE [Concomitant]
     Active Substance: CYCLOSPORINE
     Dosage: UNK
  3. SIROLIMUS [Concomitant]
     Active Substance: SIROLIMUS
     Dosage: UNK
  4. OSELTAMIVIR [Concomitant]
     Active Substance: OSELTAMIVIR
  5. SU HUANG ZHI KE [Concomitant]
  6. CEFUROXIME [Concomitant]
     Active Substance: CEFUROXIME
  7. ACETAMINOPHEN [Concomitant]
     Active Substance: ACETAMINOPHEN
  8. IBUPROFEN [Concomitant]
     Active Substance: IBUPROFEN
  9. PIPERACILLIN SODIUM\TAZOBACTAM SODIUM [Concomitant]
     Active Substance: PIPERACILLIN SODIUM\TAZOBACTAM SODIUM
  10. MAGNESIUM ISOGLYCYRRHIZINATE [Concomitant]
     Active Substance: MAGNESIUM ISOGLYCYRRHIZINATE
     Dosage: UNK
     Dates: start: 20230308, end: 20230308
  11. ADEMETIONINE BUTANEDISULFONATE [Concomitant]
     Active Substance: ADEMETIONINE BUTANEDISULFONATE
     Dosage: UNK
     Dates: start: 20230308, end: 20230308

REACTIONS (1)
  - Ventricular tachycardia [Recovering/Resolving]

NARRATIVE: CASE EVENT DATE: 20230310
